FAERS Safety Report 6334834-3 (Version None)
Quarter: 2009Q3

REPORT INFORMATION
  Report Type: 
  Country: None (occurrence: None)
  Receive Date: 20090826
  Receipt Date: 20090811
  Transmission Date: 20100115
  Serious: Yes (Other)
  Sender: FDA-Public Use
  Company Number: AUR-APL-2009-00439

PATIENT
  Age: 60 Year
  Sex: Male
  Weight: 117.9352 kg

DRUGS (5)
  1. AMLODIPINE 5MG TABLET [Suspect]
     Indication: HYPERTENSION
     Dosage: 5 MG, DAILY, ORALLY
     Route: 048
  2. LISINOPRIL [Suspect]
     Indication: HYPERTENSION
     Dosage: 40 MG, DAILY, ORALLY
     Route: 048
  3. SILDENAFIL CITRATE [Suspect]
     Indication: ERECTILE DYSFUNCTION
     Dosage: 50-100MG - UNK - UNK
  4. SIMVASTATIN [Concomitant]
  5. CYCLOBENZAPRINE [Concomitant]

REACTIONS (2)
  - DRUG EFFECT DECREASED [None]
  - HYPERTENSION [None]
